FAERS Safety Report 10975379 (Version 2)
Quarter: 2015Q2

REPORT INFORMATION
  Report Type: Spontaneous
  Country: JP (occurrence: JP)
  Receive Date: 20150401
  Receipt Date: 20150501
  Transmission Date: 20150821
  Serious: Yes (Other)
  Sender: FDA-Public Use
  Company Number: JP-GLAXOSMITHKLINE-JP2015JPN040369

PATIENT
  Age: 28 Year
  Sex: Male

DRUGS (5)
  1. ETHYL LOFLAZEPATE [Concomitant]
     Active Substance: ETHYL LOFLAZEPATE
     Dosage: 5 MG, QD
     Dates: start: 20150326, end: 20150326
  2. ABILIFY [Concomitant]
     Active Substance: ARIPIPRAZOLE
     Dosage: 30 MG, QD
     Dates: start: 20150326, end: 20150326
  3. LAMICTAL [Suspect]
     Active Substance: LAMOTRIGINE
     Indication: BIPOLAR DISORDER
     Dosage: 150 MG, UNK
     Route: 048
     Dates: end: 20150325
  4. VALPROATE SODIUM. [Concomitant]
     Active Substance: VALPROATE SODIUM
     Dosage: 1000 MG, QD
     Dates: start: 20150326, end: 20150326
  5. LAMICTAL [Suspect]
     Active Substance: LAMOTRIGINE
     Dosage: 1500 MG, UNK
     Route: 048
     Dates: start: 20150326, end: 20150326

REACTIONS (2)
  - Depressed level of consciousness [Recovered/Resolved]
  - Overdose [Unknown]

NARRATIVE: CASE EVENT DATE: 20150326
